FAERS Safety Report 9536994 (Version 2)
Quarter: 2013Q4

REPORT INFORMATION
  Report Type: Spontaneous
  Country: CZ (occurrence: CZ)
  Receive Date: 20130919
  Receipt Date: 20131022
  Transmission Date: 20140711
  Serious: Yes (Disabling)
  Sender: FDA-Public Use
  Company Number: CZ-B.I. PHARMACEUTICALS,INC./RIDGEFIELD-2013-BI-29137CZ

PATIENT
  Age: 67 Year
  Sex: Female

DRUGS (8)
  1. PRADAXA [Suspect]
     Indication: ATRIAL FIBRILLATION
     Dosage: 300 MG
     Route: 048
     Dates: start: 20130716, end: 20130820
  2. AMIODARON [Concomitant]
     Indication: ATRIAL FIBRILLATION
     Dosage: 200 MG
     Route: 048
     Dates: start: 20130414
  3. AMIODARON [Concomitant]
     Dosage: 400 MG
     Route: 048
     Dates: start: 20130407, end: 20130414
  4. CORTICOIDS (NOT SPECIFIED) [Concomitant]
     Indication: RHEUMATOID ARTHRITIS
     Dates: start: 1998
  5. METOTHREXATE [Concomitant]
     Indication: RHEUMATOID ARTHRITIS
     Dates: start: 1998
  6. NSA (NOT SPECIFIED) [Concomitant]
     Indication: RHEUMATOID ARTHRITIS
     Dates: start: 1998
  7. EUTHYROX [Concomitant]
     Indication: HYPOTHYROIDISM
     Dosage: 150 MG
     Route: 048
  8. XARELTO [Concomitant]
     Indication: ATRIAL FIBRILLATION
     Dosage: 20 MG
     Route: 048
     Dates: start: 20130822

REACTIONS (1)
  - Arthralgia [Recovered/Resolved]
